FAERS Safety Report 15056511 (Version 1)
Quarter: 2018Q2

REPORT INFORMATION
  Report Type: Report from Study
  Country: CN (occurrence: CN)
  Receive Date: 20180623
  Receipt Date: 20180623
  Transmission Date: 20180711
  Serious: Yes (Other)
  Sender: FDA-Public Use
  Company Number: CN-ROCHE-2135548

PATIENT
  Sex: Female
  Weight: 60 kg

DRUGS (1)
  1. AVASTIN [Suspect]
     Active Substance: BEVACIZUMAB
     Indication: COLORECTAL CANCER
     Dosage: 400MG AND 500MG BY ALTERNATE USE
     Route: 041
     Dates: start: 20170519

REACTIONS (3)
  - Asthenia [Unknown]
  - Abdominal adhesions [Unknown]
  - Intestinal obstruction [Unknown]
